FAERS Safety Report 8544946-1 (Version None)
Quarter: 2012Q3

REPORT INFORMATION
  Report Type: 
  Country: None (occurrence: None)
  Receive Date: 20120727
  Receipt Date: 20120720
  Transmission Date: 20120928
  Serious: Yes (Other)
  Sender: FDA-Public Use
  Company Number: US-JNJFOC-20120711699

PATIENT
  Sex: Female
  Weight: 72.58 kg

DRUGS (4)
  1. BENADRYL [Concomitant]
     Indication: SLEEP DISORDER
     Route: 048
  2. ACETAMINOPHEN [Concomitant]
     Route: 048
  3. REMICADE [Suspect]
     Indication: CROHN'S DISEASE
     Route: 042
     Dates: start: 20080601
  4. MELATONIN [Concomitant]
     Indication: SLEEP DISORDER
     Route: 048

REACTIONS (9)
  - PRURITUS [None]
  - DISTURBANCE IN ATTENTION [None]
  - VISION BLURRED [None]
  - MEMORY IMPAIRMENT [None]
  - ABSCESS DRAINAGE [None]
  - DIPLOPIA [None]
  - STREPTOCOCCAL INFECTION [None]
  - CELLULITIS STAPHYLOCOCCAL [None]
  - DRUG INEFFECTIVE [None]
